FAERS Safety Report 5672686-5 (Version None)
Quarter: 2008Q1

REPORT INFORMATION
  Report Type: 
  Country: None (occurrence: None)
  Receive Date: 20080319
  Receipt Date: 20071009
  Transmission Date: 20080703
  Serious: No
  Sender: FDA-Public Use
  Company Number: US-KINGPHARMUSA00001-K200701310

PATIENT

DRUGS (5)
  1. ALTACE [Suspect]
     Indication: HYPERTENSION
     Dosage: UNK, QD
  2. ALTACE [Suspect]
     Dosage: UNK, UNK
  3. FISH OIL [Concomitant]
  4. CALCIUM [Concomitant]
  5. OTHERS - UNKNOWN [Concomitant]

REACTIONS (1)
  - HYPOTENSION [None]
